FAERS Safety Report 14905496 (Version 1)
Quarter: 2018Q2

REPORT INFORMATION
  Report Type: Spontaneous
  Country: FR (occurrence: FR)
  Receive Date: 20180517
  Receipt Date: 20180517
  Transmission Date: 20180711
  Serious: Yes (Other)
  Sender: FDA-Public Use
  Company Number: FR-MERCK KGAA-2047961

PATIENT
  Sex: Female

DRUGS (1)
  1. NOVOTHYROX [Suspect]
     Active Substance: LEVOTHYROXINE SODIUM
     Indication: THYROID DISORDER

REACTIONS (19)
  - Abdominal pain [None]
  - Fatigue [None]
  - Self esteem decreased [None]
  - Headache [None]
  - Insomnia [None]
  - Suicidal ideation [None]
  - Marital problem [None]
  - Muscle spasms [None]
  - Hyperhidrosis [None]
  - Mood altered [None]
  - Alopecia [None]
  - Depression [None]
  - Emotional distress [None]
  - Antisocial behaviour [None]
  - Weight increased [None]
  - Loss of libido [None]
  - Negative thoughts [None]
  - Crying [None]
  - Loss of personal independence in daily activities [None]
